FAERS Safety Report 25956144 (Version 2)
Quarter: 2025Q4

REPORT INFORMATION
  Report Type: Report from Study
  Country: CA (occurrence: CA)
  Receive Date: 20251024
  Receipt Date: 20251104
  Transmission Date: 20260118
  Serious: Yes (Other)
  Sender: RECORDATI
  Company Number: CA-ORPHANEU-2025007523

PATIENT
  Sex: Male

DRUGS (4)
  1. SIGNIFOR LAR [Suspect]
     Active Substance: PASIREOTIDE PAMOATE
     Indication: Cushing^s syndrome
     Dosage: 60 MG, ONCE EVERY 4 WEEKS X 12
     Route: 030
     Dates: start: 20230116
  2. METFORMIN [Concomitant]
     Active Substance: METFORMIN HYDROCHLORIDE
     Indication: Product used for unknown indication
     Dosage: UNK
  3. SOMATULINE DEPOT [Concomitant]
     Active Substance: LANREOTIDE ACETATE
     Indication: Product used for unknown indication
     Dosage: UNK
  4. SOMAVERT [Concomitant]
     Active Substance: PEGVISOMANT
     Indication: Acromegaly
     Dosage: 25 MG PER DAY

REACTIONS (2)
  - Diabetes mellitus inadequate control [Not Recovered/Not Resolved]
  - Diarrhoea [Not Recovered/Not Resolved]
